FAERS Safety Report 11677880 (Version 1)
Quarter: 2015Q4

REPORT INFORMATION
  Report Type: Spontaneous
  Country: US (occurrence: US)
  Receive Date: 20151028
  Receipt Date: 20151028
  Transmission Date: 20160304
  Serious: Yes (Hospitalization, Other)
  Sender: FDA-Public Use
  Company Number: US-TEVA-603523USA

PATIENT
  Age: 75 Year
  Sex: Male
  Weight: 68 kg

DRUGS (9)
  1. ASP8273 [Suspect]
     Active Substance: INVESTIGATIONAL PRODUCT
     Indication: NON-SMALL CELL LUNG CANCER
     Dosage: 300 MILLIGRAM DAILY;
     Route: 048
     Dates: start: 20150204
  2. COLACE [Concomitant]
     Active Substance: DOCUSATE SODIUM
  3. MEGACE [Concomitant]
     Active Substance: MEGESTROL ACETATE
  4. SENNA [Concomitant]
     Active Substance: SENNA LEAF\SENNOSIDES\SENNOSIDES A AND B
  5. FLONASE [Concomitant]
     Active Substance: FLUTICASONE PROPIONATE
  6. MIRTAZAPINE. [Concomitant]
     Active Substance: MIRTAZAPINE
  7. LISINOPRIL. [Suspect]
     Active Substance: LISINOPRIL
     Indication: HYPERTENSION
     Dosage: 5 MILLIGRAM DAILY;
     Route: 048
     Dates: start: 20111227
  8. BACLOFEN. [Concomitant]
     Active Substance: BACLOFEN
  9. RITALIN [Concomitant]
     Active Substance: METHYLPHENIDATE HYDROCHLORIDE

REACTIONS (2)
  - Anaphylactic reaction [Recovering/Resolving]
  - Metastatic squamous cell carcinoma [Not Recovered/Not Resolved]

NARRATIVE: CASE EVENT DATE: 20150409
